FAERS Safety Report 23179153 (Version 1)
Quarter: 2023Q4

REPORT INFORMATION
  Report Type: Spontaneous
  Country: US (occurrence: US)
  Receive Date: 20231113
  Receipt Date: 20231113
  Transmission Date: 20240109
  Serious: No
  Sender: FDA-Public Use
  Company Number: US-ELI_LILLY_AND_COMPANY-US202311005618

PATIENT
  Sex: Female

DRUGS (2)
  1. MOUNJARO [Suspect]
     Active Substance: TIRZEPATIDE
     Indication: Blood glucose abnormal
     Dosage: 5 MG, UNKNOWN
     Route: 058
  2. MOUNJARO [Suspect]
     Active Substance: TIRZEPATIDE
     Indication: Blood glucose abnormal
     Dosage: 5 MG, UNKNOWN
     Route: 058

REACTIONS (4)
  - Injection site pain [Unknown]
  - Injection site erythema [Recovered/Resolved]
  - Off label use [Unknown]
  - Incorrect dose administered [Unknown]
